FAERS Safety Report 8287765-6 (Version None)
Quarter: 2012Q2

REPORT INFORMATION
  Report Type: 
  Country: None (occurrence: None)
  Receive Date: 20120416
  Receipt Date: 20120410
  Transmission Date: 20120825
  Serious: Yes (Hospitalization)
  Sender: FDA-Public Use
  Company Number: US-MERCK-1201USA03708

PATIENT
  Age: 81 Year
  Sex: Female

DRUGS (9)
  1. FOSAMAX [Suspect]
     Route: 048
     Dates: start: 20080114
  2. FOSAMAX [Suspect]
     Route: 048
     Dates: start: 20080114
  3. FOSAMAX [Suspect]
     Route: 048
     Dates: start: 19990101
  4. FOSAMAX [Suspect]
     Indication: OSTEOPOROSIS POSTMENOPAUSAL
     Route: 048
     Dates: start: 20060803, end: 20071221
  5. FOSAMAX [Suspect]
     Indication: OSTEOPENIA
     Route: 048
     Dates: start: 20060803, end: 20071221
  6. FOSAMAX [Suspect]
     Route: 048
     Dates: start: 20060417, end: 20060619
  7. FOSAMAX [Suspect]
     Route: 048
     Dates: start: 20060417, end: 20060619
  8. ALENDRONATE SODIUM [Suspect]
     Indication: OSTEOPOROSIS POSTMENOPAUSAL
     Route: 048
     Dates: start: 20080312, end: 20110314
  9. FOSAMAX [Suspect]
     Route: 048
     Dates: start: 19990101

REACTIONS (10)
  - GROIN PAIN [None]
  - LOW TURNOVER OSTEOPATHY [None]
  - TOOTH ABSCESS [None]
  - FALL [None]
  - FEMUR FRACTURE [None]
  - FRACTURED SACRUM [None]
  - ANXIETY [None]
  - BACK PAIN [None]
  - RIB FRACTURE [None]
  - MUSCULOSKELETAL PAIN [None]
